FAERS Safety Report 8593495 (Version 2)
Quarter: 2014Q1

REPORT INFORMATION
  Report Type: Spontaneous
  Country: US (occurrence: US)
  Receive Date: 20120604
  Receipt Date: 20140108
  Transmission Date: 20141002
  Serious: Yes (Disabling, Other)
  Sender: FDA-Public Use
  Company Number: US-ASTRAZENECA-2012SE34957

PATIENT
  Age: 43 Year
  Sex: Female

DRUGS (17)
  1. NEXIUM [Suspect]
     Indication: GASTROOESOPHAGEAL REFLUX DISEASE
     Route: 048
  2. NEXIUM [Suspect]
     Indication: GASTROOESOPHAGEAL REFLUX DISEASE
     Route: 048
  3. PRILOSEC [Suspect]
     Indication: GASTROOESOPHAGEAL REFLUX DISEASE
     Route: 048
  4. PRILOSEC [Suspect]
     Indication: GASTROOESOPHAGEAL REFLUX DISEASE
     Route: 048
  5. TUMS [Concomitant]
     Indication: GASTROOESOPHAGEAL REFLUX DISEASE
  6. TUMS [Concomitant]
     Indication: GASTROOESOPHAGEAL REFLUX DISEASE
  7. TAGAMET [Concomitant]
     Indication: GASTROOESOPHAGEAL REFLUX DISEASE
  8. TAGAMET [Concomitant]
     Indication: GASTROOESOPHAGEAL REFLUX DISEASE
  9. PREVACID [Concomitant]
     Indication: GASTROOESOPHAGEAL REFLUX DISEASE
  10. PREVACID [Concomitant]
     Indication: GASTROOESOPHAGEAL REFLUX DISEASE
  11. ZANTAC [Concomitant]
     Indication: GASTROOESOPHAGEAL REFLUX DISEASE
  12. ZANTAC [Concomitant]
     Indication: GASTROOESOPHAGEAL REFLUX DISEASE
  13. PEPCID [Concomitant]
     Indication: GASTROOESOPHAGEAL REFLUX DISEASE
  14. PEPCID [Concomitant]
     Indication: GASTROOESOPHAGEAL REFLUX DISEASE
  15. CELEXA [Concomitant]
  16. TYLENOL [Concomitant]
  17. ANTIBIOTICS [Concomitant]

REACTIONS (17)
  - Cerebrovascular accident [Unknown]
  - Neoplasm malignant [Unknown]
  - Fibromyalgia [Unknown]
  - Rotator cuff syndrome [Unknown]
  - Osteoporosis [Unknown]
  - Multiple fractures [Unknown]
  - Immune system disorder [Unknown]
  - Post-traumatic stress disorder [Unknown]
  - Bone pain [Unknown]
  - Calcium deficiency [Unknown]
  - Cataract [Unknown]
  - Arthritis [Unknown]
  - Chronic obstructive pulmonary disease [Unknown]
  - Cardiovascular disorder [Unknown]
  - Rheumatoid arthritis [Unknown]
  - Vitamin D deficiency [Unknown]
  - Depression [Unknown]
